FAERS Safety Report 13605732 (Version 1)
Quarter: 2017Q2

REPORT INFORMATION
  Report Type: Report from Study
  Country: CO (occurrence: CO)
  Receive Date: 20170602
  Receipt Date: 20170602
  Transmission Date: 20170830
  Serious: Yes (Death, Other)
  Sender: FDA-Public Use
  Company Number: CO-AMGEN-COLSL2017083556

PATIENT
  Age: 64 Year
  Sex: Male

DRUGS (1)
  1. VECTIBIX [Suspect]
     Active Substance: PANITUMUMAB
     Indication: COLORECTAL CANCER METASTATIC
     Dosage: UNK UNK, Q2WK
     Route: 042
     Dates: start: 20170505, end: 20170509

REACTIONS (1)
  - Death [Fatal]

NARRATIVE: CASE EVENT DATE: 20170509
